FAERS Safety Report 23248957 (Version 1)
Quarter: 2023Q4

REPORT INFORMATION
  Report Type: Report from Study
  Country: CO (occurrence: CO)
  Receive Date: 20231201
  Receipt Date: 20231201
  Transmission Date: 20240109
  Serious: Yes (Hospitalization)
  Sender: FDA-Public Use
  Company Number: CO-ZAMBON-202304756COR

PATIENT
  Age: 66 Year
  Sex: Female
  Weight: 61 kg

DRUGS (3)
  1. XADAGO [Suspect]
     Active Substance: SAFINAMIDE MESYLATE
     Indication: Parkinson^s disease
     Route: 048
     Dates: start: 20230911, end: 20230926
  2. XADAGO [Suspect]
     Active Substance: SAFINAMIDE MESYLATE
     Route: 048
     Dates: start: 20230927, end: 20231015
  3. CARBIDOPA\LEVODOPA [Concomitant]
     Active Substance: CARBIDOPA\LEVODOPA
     Indication: Parkinson^s disease
     Dosage: NOT PROVIDED

REACTIONS (3)
  - Oxygen saturation decreased [Recovered/Resolved]
  - Balance disorder [Recovered/Resolved]
  - Hypertension [Recovered/Resolved]

NARRATIVE: CASE EVENT DATE: 20231012
